FAERS Safety Report 5311784-2 (Version None)
Quarter: 2007Q2

REPORT INFORMATION
  Report Type: 
  Country: None (occurrence: None)
  Receive Date: 20070430
  Receipt Date: 20060320
  Transmission Date: 20071010
  Serious: No
  Sender: FDA-Public Use
  Company Number: 2006UW04810

PATIENT
  Age: 58 Year
  Sex: Male
  Weight: 97.5 kg

DRUGS (10)
  1. NEXIUM [Suspect]
     Indication: ULCER
     Route: 048
  2. NEXIUM [Suspect]
     Indication: EROSIVE OESOPHAGITIS
     Route: 048
  3. ARICEPT [Concomitant]
  4. TEGRETOL [Concomitant]
  5. THORAZINE [Concomitant]
  6. PLAVIX [Concomitant]
  7. ASPIRIN [Concomitant]
  8. DARVOCET [Concomitant]
  9. LABETALOL HCL [Concomitant]
  10. CLONIDINE [Concomitant]

REACTIONS (3)
  - EROSIVE OESOPHAGITIS [None]
  - HELICOBACTER INFECTION [None]
  - OESOPHAGEAL ULCER [None]
